FAERS Safety Report 18108570 (Version 1)
Quarter: 2020Q3

REPORT INFORMATION
  Report Type: Report from Study
  Country: CA (occurrence: CA)
  Receive Date: 20200803
  Receipt Date: 20200803
  Transmission Date: 20201103
  Serious: Yes (Other)
  Sender: FDA-Public Use
  Company Number: CA-ACCORD-193774

PATIENT
  Age: 38 Year
  Sex: Female

DRUGS (15)
  1. METHOTREXATE. [Suspect]
     Active Substance: METHOTREXATE
     Indication: PRODUCT USED FOR UNKNOWN INDICATION
     Route: 065
  2. CICLESONIDE [Concomitant]
     Active Substance: CICLESONIDE
     Route: 055
  3. ZINC OXIDE. [Concomitant]
     Active Substance: ZINC OXIDE
  4. INSULIN ASPART [Concomitant]
     Active Substance: INSULIN ASPART
  5. SELENIUM [Concomitant]
     Active Substance: SELENIUM
  6. ACTEMRA [Suspect]
     Active Substance: TOCILIZUMAB
     Indication: RHEUMATOID ARTHRITIS
     Dosage: 1 EVERY 1?WEEKS
     Route: 058
  7. ACTEMRA [Suspect]
     Active Substance: TOCILIZUMAB
     Indication: RHEUMATOID ARTHRITIS
     Dosage: 1 EVERY 2 WEEKS
     Route: 058
  8. CHROMIUM [Concomitant]
     Active Substance: CHROMIC CHLORIDE\CHROMIUM
  9. CODEINE/PARACETAMOL [Concomitant]
     Active Substance: ACETAMINOPHEN\CODEINE PHOSPHATE
  10. ALUMINIUM HYDROXIDE/MAGNESIUM HYDROXIDE [Concomitant]
     Active Substance: ALUMINUM HYDROXIDE\MAGNESIUM HYDROXIDE
  11. OMNARIS [Concomitant]
     Active Substance: CICLESONIDE
     Route: 045
  12. PREDNISONE. [Concomitant]
     Active Substance: PREDNISONE
     Route: 065
  13. ASCORBIC ACID. [Concomitant]
     Active Substance: ASCORBIC ACID
  14. DEXILANT [Concomitant]
     Active Substance: DEXLANSOPRAZOLE
  15. INDACATEROL [Concomitant]
     Active Substance: INDACATEROL
     Route: 055

REACTIONS (3)
  - Neutropenia [Unknown]
  - Respiratory tract infection [Unknown]
  - Bronchitis [Unknown]
